FAERS Safety Report 11624490 (Version 1)
Quarter: 2015Q4

REPORT INFORMATION
  Report Type: Spontaneous
  Country: US (occurrence: US)
  Receive Date: 20151013
  Receipt Date: 20151013
  Transmission Date: 20160304
  Serious: Yes (Disabling)
  Sender: FDA-Public Use
  Company Number: PHEH2015US019928

PATIENT
  Age: 54 Year
  Sex: Female
  Weight: 88.9 kg

DRUGS (4)
  1. VOLTAREN [Suspect]
     Active Substance: DICLOFENAC SODIUM
     Indication: PRODUCT USED FOR UNKNOWN INDICATION
     Dosage: 50 MG, TID
     Route: 048
     Dates: start: 20150303, end: 20150920
  2. GILENYA [Suspect]
     Active Substance: FINGOLIMOD HYDROCHLORIDE
     Indication: MULTIPLE SCLEROSIS
     Dosage: 0.5 MG, QD
     Route: 048
     Dates: start: 20150507, end: 20150920
  3. PROVIGIL [Suspect]
     Active Substance: MODAFINIL
     Indication: FATIGUE
     Dosage: 200 MG, BID
     Route: 048
     Dates: start: 20150128
  4. BACLOFEN. [Suspect]
     Active Substance: BACLOFEN
     Indication: MUSCLE SPASMS
     Dosage: 20 MG, TID
     Route: 048
     Dates: start: 20141210, end: 20150920

REACTIONS (1)
  - Secondary progressive multiple sclerosis [Not Recovered/Not Resolved]

NARRATIVE: CASE EVENT DATE: 20150723
